FAERS Safety Report 20680087 (Version 1)
Quarter: 2022Q2

REPORT INFORMATION
  Report Type: Report from Study
  Country: GB (occurrence: GB)
  Receive Date: 20220406
  Receipt Date: 20220406
  Transmission Date: 20220721
  Serious: Yes (Other)
  Sender: FDA-Public Use
  Company Number: GB-SAMSUNG BIOEPIS-SB-2022-08240

PATIENT
  Age: 63 Year
  Sex: Female

DRUGS (1)
  1. ETANERCEPT [Suspect]
     Active Substance: ETANERCEPT
     Indication: Polyarthritis
     Route: 058
     Dates: start: 20220104

REACTIONS (2)
  - Lower respiratory tract infection [Unknown]
  - Product use in unapproved indication [Unknown]
